FAERS Safety Report 18461050 (Version 2)
Quarter: 2020Q4

REPORT INFORMATION
  Report Type: Spontaneous
  Country: US (occurrence: US)
  Receive Date: 20201104
  Receipt Date: 20201106
  Transmission Date: 20210114
  Serious: Yes (Other)
  Sender: FDA-Public Use
  Company Number: US-BRISTOL-MYERS SQUIBB COMPANY-BMS-2020-090846

PATIENT
  Age: 67 Year
  Sex: Male
  Weight: 83.9 kg

DRUGS (2)
  1. DILTIAZEM. [Suspect]
     Active Substance: DILTIAZEM
     Indication: ATRIAL FIBRILLATION
     Dosage: 240 MILLIGRAM
     Route: 065
     Dates: start: 202006
  2. ELIQUIS [Suspect]
     Active Substance: APIXABAN
     Indication: CEREBROVASCULAR ACCIDENT PROPHYLAXIS
     Dosage: 1 TAB, BID
     Route: 048
     Dates: start: 202006

REACTIONS (1)
  - Acute febrile neutrophilic dermatosis [Not Recovered/Not Resolved]

NARRATIVE: CASE EVENT DATE: 202008
